FAERS Safety Report 6299810-8 (Version None)
Quarter: 2009Q3

REPORT INFORMATION
  Report Type: 
  Country: None (occurrence: None)
  Receive Date: 20090806
  Receipt Date: 20090729
  Transmission Date: 20100115
  Serious: Yes (Hospitalization)
  Sender: FDA-Public Use
  Company Number: AU-AVENTIS-200917769GDDC

PATIENT
  Age: 38 Year
  Sex: Female

DRUGS (7)
  1. ARAVA [Suspect]
     Dates: start: 20050407
  2. PREDNISONE [Concomitant]
  3. AURANOFIN [Concomitant]
     Dosage: DOSE: UNK
  4. NUROFEN PLUS [Concomitant]
     Dosage: DOSE: UNK
  5. PANADEINE                          /00116401/ [Concomitant]
     Dosage: DOSE: UNK
  6. ENDONE [Concomitant]
     Dosage: DOSE: UNK
  7. ENDEP [Concomitant]
     Dosage: DOSE: UNK

REACTIONS (1)
  - WRIST SURGERY [None]
